FAERS Safety Report 18202563 (Version 1)
Quarter: 2020Q3

REPORT INFORMATION
  Report Type: Spontaneous
  Country: US (occurrence: US)
  Receive Date: 20200826
  Receipt Date: 20200826
  Transmission Date: 20201103
  Serious: Yes (Hospitalization, Other)
  Sender: FDA-Public Use
  Company Number: None

PATIENT
  Age: 47 Year
  Sex: Male
  Weight: 162 kg

DRUGS (1)
  1. REMDESIVIR. [Suspect]
     Active Substance: REMDESIVIR
     Indication: COVID-19
     Route: 042
     Dates: start: 20200714, end: 20200720

REACTIONS (13)
  - Staphylococcal infection [None]
  - Pneumonia staphylococcal [None]
  - Pulmonary oedema [None]
  - Cholelithiasis [None]
  - Renal impairment [None]
  - Cholecystitis acute [None]
  - Treatment failure [None]
  - Sputum culture positive [None]
  - Metabolic acidosis [None]
  - Hyperkalaemia [None]
  - Hypercapnia [None]
  - Haematuria [None]
  - PCO2 increased [None]

NARRATIVE: CASE EVENT DATE: 20200728
